FAERS Safety Report 6316000-0 (Version None)
Quarter: 2009Q3

REPORT INFORMATION
  Report Type: 
  Country: None (occurrence: None)
  Receive Date: 20090820
  Receipt Date: 20081106
  Transmission Date: 20100115
  Serious: No
  Sender: FDA-Public Use
  Company Number: US-KINGPHARMUSA00001-K200801276

PATIENT
  Sex: Female
  Weight: 59.9 kg

DRUGS (6)
  1. CYTOMEL [Suspect]
     Indication: HYPOTHYROIDISM
     Dosage: UNK
     Dates: start: 20080101, end: 20080903
  2. LUNESTA [Suspect]
     Indication: INSOMNIA
     Dosage: 3 MG, UNK
     Route: 048
     Dates: start: 20080301
  3. VITAMINS                           /90003601/ [Suspect]
  4. SEROQUEL [Suspect]
     Indication: INSOMNIA
     Dosage: UNK
     Dates: start: 20080904, end: 20080915
  5. TRAZODONE HCL [Concomitant]
     Indication: SLEEP DISORDER
     Dosage: UNK
     Dates: start: 20080801, end: 20080903
  6. ATIVAN [Concomitant]
     Indication: ANXIETY

REACTIONS (6)
  - BURNING SENSATION [None]
  - FATIGUE [None]
  - INSOMNIA [None]
  - MUSCLE DISORDER [None]
  - PAIN [None]
  - TENSION [None]
